FAERS Safety Report 4839610-6 (Version None)
Quarter: 2005Q4

REPORT INFORMATION
  Report Type: 
  Country: None (occurrence: None)
  Receive Date: 20051129
  Receipt Date: 20051123
  Transmission Date: 20060501
  Serious: Yes (Hospitalization)
  Sender: FDA-Public Use
  Company Number: FR-AVENTIS-200513854FR

PATIENT
  Age: 60 Year
  Sex: Female
  Weight: 67 kg

DRUGS (3)
  1. RODOGYL [Suspect]
     Indication: TONSILLITIS
     Route: 048
     Dates: start: 20051030, end: 20051104
  2. CYSTINE [Suspect]
     Route: 048
  3. RHINATHIOL [Suspect]
     Indication: TONSILLITIS
     Route: 048
     Dates: start: 20051031, end: 20051104

REACTIONS (3)
  - PRURITUS [None]
  - RASH MACULO-PAPULAR [None]
  - TOXIC SKIN ERUPTION [None]
